FAERS Safety Report 16800914 (Version 2)
Quarter: 2021Q3

REPORT INFORMATION
  Report Type: Spontaneous
  Country: US (occurrence: US)
  Receive Date: 20190912
  Receipt Date: 20210908
  Transmission Date: 20211014
  Serious: Yes (Death, Other)
  Sender: FDA-Public Use
  Company Number: US-ASTELLAS-2019US005913

PATIENT
  Age: 61 Year
  Sex: Male

DRUGS (3)
  1. KEYTRUDA [Suspect]
     Active Substance: PEMBROLIZUMAB
     Indication: PRODUCT USED FOR UNKNOWN INDICATION
     Dosage: UNK UNK, UNKNOWN FREQ.
     Route: 065
  2. XTANDI [Suspect]
     Active Substance: ENZALUTAMIDE
     Route: 065
  3. XTANDI [Suspect]
     Active Substance: ENZALUTAMIDE
     Indication: PROSTATE CANCER
     Route: 065
     Dates: start: 20170128

REACTIONS (10)
  - Cognitive disorder [Unknown]
  - Lactose intolerance [Unknown]
  - Pain [Unknown]
  - Fatigue [Unknown]
  - Prostatic specific antigen increased [Not Recovered/Not Resolved]
  - Constipation [Recovered/Resolved]
  - Abdominal discomfort [Unknown]
  - Sleep disorder [Unknown]
  - Depression [Recovered/Resolved]
  - Death [Fatal]

NARRATIVE: CASE EVENT DATE: 2017
